FAERS Safety Report 5415678-3 (Version None)
Quarter: 2007Q3

REPORT INFORMATION
  Report Type: 
  Country: None (occurrence: None)
  Receive Date: 20070815
  Receipt Date: 20070808
  Transmission Date: 20080115
  Serious: Yes (Other)
  Sender: FDA-Public Use
  Company Number: GR-ASTRAZENECA-2007AC01514

PATIENT
  Age: 49 Year
  Sex: Female

DRUGS (1)
  1. PROPOFOL [Suspect]
     Indication: SEDATION
     Dosage: 300 MG/H
     Route: 042

REACTIONS (3)
  - HYPOXIA [None]
  - LUNG INJURY [None]
  - PLEURAL EFFUSION [None]
